FAERS Safety Report 25892025 (Version 2)
Quarter: 2025Q4

REPORT INFORMATION
  Report Type: Report from Study
  Country: RU (occurrence: RU)
  Receive Date: 20251007
  Receipt Date: 20251017
  Transmission Date: 20260117
  Serious: Yes (Death, Other)
  Sender: TAKEDA
  Company Number: RU-TAKEDA-2025TUS087421

PATIENT
  Sex: Female

DRUGS (1)
  1. FRUQUINTINIB [Suspect]
     Active Substance: FRUQUINTINIB
     Indication: Colorectal cancer metastatic
     Dosage: 5 MILLIGRAM, QD
     Dates: start: 20250427, end: 20250801

REACTIONS (5)
  - Colorectal cancer metastatic [Fatal]
  - Hepatic lesion [Fatal]
  - Multiple organ dysfunction syndrome [Fatal]
  - Fatigue [Fatal]
  - Hypertension [Fatal]

NARRATIVE: CASE EVENT DATE: 20250428
